FAERS Safety Report 14401517 (Version 3)
Quarter: 2018Q3

REPORT INFORMATION
  Report Type: Spontaneous
  Country: US (occurrence: US)
  Receive Date: 20180117
  Receipt Date: 20180928
  Transmission Date: 20181010
  Serious: Yes (Other)
  Sender: FDA-Public Use
  Company Number: US-ASTRAZENECA-2018SE03948

PATIENT
  Age: 62 Year
  Sex: Female

DRUGS (155)
  1. NEXIUM [Suspect]
     Active Substance: ESOMEPRAZOLE MAGNESIUM
     Indication: GASTRIC PH DECREASED
     Route: 048
     Dates: start: 2005, end: 2018
  2. ALKA?SELTZER [Concomitant]
     Active Substance: ANHYDROUS CITRIC ACID\ASPIRIN\SODIUM BICARBONATE
     Route: 065
     Dates: start: 2000, end: 2005
  3. CELEBREX [Concomitant]
     Active Substance: CELECOXIB
     Route: 048
     Dates: start: 20001025
  4. ALLEGRA [Concomitant]
     Active Substance: FEXOFENADINE HYDROCHLORIDE
     Route: 048
     Dates: start: 20001108
  5. ALLEGRA [Concomitant]
     Active Substance: FEXOFENADINE HYDROCHLORIDE
     Dosage: FEXOFENADINE HCL
  6. ZANAFLEX [Concomitant]
     Active Substance: TIZANIDINE HYDROCHLORIDE
     Dosage: TIZANIDINE HCL
  7. DIFLUCAN [Concomitant]
     Active Substance: FLUCONAZOLE
     Dosage: FLUCONAZOLE
  8. CYMBALTA [Concomitant]
     Active Substance: DULOXETINE HYDROCHLORIDE
     Dosage: DULOXETINE
  9. HYZAAR [Concomitant]
     Active Substance: HYDROCHLOROTHIAZIDE\LOSARTAN POTASSIUM
     Dosage: 100?25 MG
     Route: 048
  10. HISTEX HC [Concomitant]
  11. PROCARDIA [Concomitant]
     Active Substance: NIFEDIPINE
  12. DESOXIMETASONE. [Concomitant]
     Active Substance: DESOXIMETASONE
     Dosage: KGS LIQUID
  13. MOBIC [Concomitant]
     Active Substance: MELOXICAM
     Dosage: KGS LIQUID
  14. LUNESTA [Concomitant]
     Active Substance: ESZOPICLONE
  15. CLARINEX?D 24 HOUR [Concomitant]
     Active Substance: DESLORATADINE\PSEUDOEPHEDRINE SULFATE
  16. STOOL SOFTENER (DOCUSATE) [Concomitant]
     Active Substance: DOCUSATE
  17. BACTROBAN [Concomitant]
     Active Substance: MUPIROCIN\MUPIROCIN CALCIUM
     Route: 065
  18. NITROFURANTOIN. [Concomitant]
     Active Substance: NITROFURANTOIN
     Dosage: MONO?MCR 1
     Route: 065
  19. FUROSEMIDE. [Concomitant]
     Active Substance: FUROSEMIDE
  20. NEXIUM [Suspect]
     Active Substance: ESOMEPRAZOLE MAGNESIUM
     Indication: GASTRIC PH DECREASED
     Route: 048
     Dates: start: 20060103
  21. ZANTAC [Concomitant]
     Active Substance: RANITIDINE HYDROCHLORIDE
     Dosage: 150 (OTC)
     Route: 065
     Dates: start: 201804
  22. LORAZEPAM. [Concomitant]
     Active Substance: LORAZEPAM
     Route: 048
     Dates: start: 20000824
  23. ALLEGRA [Concomitant]
     Active Substance: FEXOFENADINE HYDROCHLORIDE
     Route: 048
     Dates: start: 20001108
  24. BEXTRA [Concomitant]
     Active Substance: VALDECOXIB
     Route: 048
     Dates: start: 20020419
  25. CIPRO [Concomitant]
     Active Substance: CIPROFLOXACIN HYDROCHLORIDE
     Dosage: CIPROFLOXAEIN HCL
  26. VYTORIN [Concomitant]
     Active Substance: EZETIMIBE\SIMVASTATIN
     Route: 048
     Dates: start: 20060725
  27. SIMVASTATIN. [Concomitant]
     Active Substance: SIMVASTATIN
     Route: 048
     Dates: start: 20081202
  28. ZOLPIDEM TARTRATE. [Concomitant]
     Active Substance: ZOLPIDEM TARTRATE
     Dosage: AMBIEN
     Route: 048
     Dates: start: 20000824
  29. PENLAC [Concomitant]
     Active Substance: CICLOPIROX
  30. MIRALAX [Concomitant]
     Active Substance: POLYETHYLENE GLYCOL 3350
  31. CLONAZEPAM. [Concomitant]
     Active Substance: CLONAZEPAM
     Dosage: KGS LIQUID
  32. OMNICEF [Concomitant]
     Active Substance: CEFDINIR
     Route: 065
  33. CYCLOBENZAPRINE. [Concomitant]
     Active Substance: CYCLOBENZAPRINE
  34. BACTROBAN [Concomitant]
     Active Substance: MUPIROCIN\MUPIROCIN CALCIUM
     Dosage: MUPIROCIN
     Route: 065
  35. LOSARTAN AND HYDROCHLOROTHIAZIDE [Concomitant]
     Active Substance: HYDROCHLOROTHIAZIDE\LOSARTAN POTASSIUM
  36. MYRBETRIQ [Concomitant]
     Active Substance: MIRABEGRON
     Dosage: ER
     Route: 065
  37. IMIPRAMINE HYDROCHLORIDE. [Concomitant]
     Active Substance: IMIPRAMINE HYDROCHLORIDE
  38. NEXIUM [Suspect]
     Active Substance: ESOMEPRAZOLE MAGNESIUM
     Indication: GASTRIC PH DECREASED
     Route: 048
     Dates: start: 200007
  39. NEXIUM [Suspect]
     Active Substance: ESOMEPRAZOLE MAGNESIUM
     Indication: GASTROINTESTINAL HAEMORRHAGE
     Route: 048
     Dates: start: 20060103
  40. NEXIUM [Suspect]
     Active Substance: ESOMEPRAZOLE MAGNESIUM
     Indication: GASTROINTESTINAL HAEMORRHAGE
     Route: 048
     Dates: start: 2005, end: 2018
  41. NEXIUM [Suspect]
     Active Substance: ESOMEPRAZOLE MAGNESIUM
     Indication: GASTRIC PH DECREASED
     Dosage: ESOMEPRAZOLE MAGNESIUM
  42. ESTRADIOL. [Concomitant]
     Active Substance: ESTRADIOL
     Dosage: VAGIFEM
     Route: 067
  43. VALIUM [Concomitant]
     Active Substance: DIAZEPAM
     Dosage: DIAZEPAM
  44. NORCO [Concomitant]
     Active Substance: ACETAMINOPHEN\HYDROCODONE BITARTRATE
     Indication: MUSCULOSKELETAL DISCOMFORT
     Route: 065
  45. CELESTONE [Concomitant]
     Active Substance: BETAMETHASONE
     Route: 048
     Dates: start: 20010713
  46. DIFLUCAN [Concomitant]
     Active Substance: FLUCONAZOLE
     Route: 048
     Dates: start: 20011221
  47. CLONIDINE. [Concomitant]
     Active Substance: CLONIDINE
     Dosage: CLONIDINE HYDROCHLORIDE
  48. METHYLPREDNISOLONE. [Concomitant]
     Active Substance: METHYLPREDNISOLONE
     Route: 048
     Dates: start: 20040209
  49. AZITHROMYCIN ANHYDROUS. [Concomitant]
     Active Substance: AZITHROMYCIN ANHYDROUS
     Route: 048
     Dates: start: 20080221
  50. CYMBALTA [Concomitant]
     Active Substance: DULOXETINE HYDROCHLORIDE
     Dosage: DULOXETINE HCL DR
  51. CIMETIDINE [Concomitant]
     Active Substance: CIMETIDINE
  52. ALPRAZOLAM. [Concomitant]
     Active Substance: ALPRAZOLAM
  53. NORVASC [Concomitant]
     Active Substance: AMLODIPINE BESYLATE
  54. POLY?IRON [Concomitant]
     Active Substance: IRON
  55. HYDROCHLOROTHIAZIDE AND LISINOPRIL [Concomitant]
     Active Substance: HYDROCHLOROTHIAZIDE\LISINOPRIL
  56. NITROSTAT [Concomitant]
     Active Substance: NITROGLYCERIN
  57. VALSARTAN/HYDROCHLOROTHIAZIDE [Concomitant]
     Active Substance: HYDROCHLOROTHIAZIDE\VALSARTAN
  58. ONDANSETRON [Concomitant]
     Active Substance: ONDANSETRON
     Dosage: ODT
     Route: 065
  59. ALLOPURINOL. [Concomitant]
     Active Substance: ALLOPURINOL
  60. METOLAZONE. [Concomitant]
     Active Substance: METOLAZONE
  61. PRAVACHOL [Concomitant]
     Active Substance: PRAVASTATIN SODIUM
     Dosage: PRAVASTATIN SODIUM
  62. NORCO [Concomitant]
     Active Substance: ACETAMINOPHEN\HYDROCODONE BITARTRATE
     Indication: MUSCULOSKELETAL DISCOMFORT
     Route: 048
     Dates: start: 20010615
  63. HYDROCODONE BITARTRATE AND ACETAMINOPHEN [Concomitant]
     Active Substance: ACETAMINOPHEN\HYDROCODONE BITARTRATE
     Dosage: HYDROCODONE?ACETAMINOPH 7
  64. KETOROLAC [Concomitant]
     Active Substance: KETOROLAC\KETOROLAC TROMETHAMINE
     Route: 048
     Dates: start: 20010905
  65. TUSSIONEX PENNKINETIC [Concomitant]
     Active Substance: CHLORPHENIRAMINE\HYDROCODONE
     Route: 048
     Dates: start: 20040126
  66. ALDACTONE [Concomitant]
     Active Substance: SPIRONOLACTONE
     Dosage: SPIRONOLACTONE
  67. ASPIRIN. [Concomitant]
     Active Substance: ASPIRIN
     Route: 048
  68. DIPHENOXYLATE/ ATROPINE TA [Concomitant]
  69. PROMETHAZINE [Concomitant]
     Active Substance: PROMETHAZINE\PROMETHAZINE HYDROCHLORIDE
  70. OXYCONTIN [Concomitant]
     Active Substance: OXYCODONE HYDROCHLORIDE
  71. AVELOX [Concomitant]
     Active Substance: MOXIFLOXACIN HYDROCHLORIDE
  72. CLARITHROMYCIN. [Concomitant]
     Active Substance: CLARITHROMYCIN
     Dosage: KGS LIQUID
  73. ANTARA [Concomitant]
     Active Substance: FENOFIBRATE
     Dosage: FENOFIBRATE
     Route: 065
  74. ALLEGRA?D [Concomitant]
     Active Substance: FEXOFENADINE\PSEUDOEPHEDRINE
  75. CLINDAMYCIN HYDROCHLORIDE. [Concomitant]
     Active Substance: CLINDAMYCIN HYDROCHLORIDE
  76. CRESTOR [Concomitant]
     Active Substance: ROSUVASTATIN CALCIUM
     Route: 065
  77. NEXIUM [Suspect]
     Active Substance: ESOMEPRAZOLE MAGNESIUM
     Indication: GASTROINTESTINAL HAEMORRHAGE
     Dosage: ESOMEPRAZOLE MAG DR
  78. PROTONIX [Suspect]
     Active Substance: PANTOPRAZOLE SODIUM
     Indication: GASTROINTESTINAL HAEMORRHAGE
     Route: 065
     Dates: start: 20180405, end: 20180605
  79. ESTRADIOL. [Concomitant]
     Active Substance: ESTRADIOL
     Route: 048
     Dates: start: 20000824
  80. PRAVACHOL [Concomitant]
     Active Substance: PRAVASTATIN SODIUM
     Route: 048
     Dates: start: 20010115
  81. NYSTOP [Concomitant]
     Active Substance: NYSTATIN
     Route: 065
     Dates: start: 20010530
  82. HYDROCODONE BITARTRATE AND ACETAMINOPHEN [Concomitant]
     Active Substance: ACETAMINOPHEN\HYDROCODONE BITARTRATE
     Route: 048
     Dates: start: 20010809
  83. CLONIDINE. [Concomitant]
     Active Substance: CLONIDINE
     Route: 048
     Dates: start: 20020917
  84. CARVEDILOL. [Concomitant]
     Active Substance: CARVEDILOL
     Route: 048
     Dates: start: 20071008
  85. ALDACTONE [Concomitant]
     Active Substance: SPIRONOLACTONE
     Route: 048
  86. CYMBALTA [Concomitant]
     Active Substance: DULOXETINE HYDROCHLORIDE
     Route: 048
  87. PLAQUENIL [Concomitant]
     Active Substance: HYDROXYCHLOROQUINE SULFATE
     Route: 048
  88. CEFZIL [Concomitant]
     Active Substance: CEFPROZIL
  89. DURAGESIC [Concomitant]
     Active Substance: FENTANYL
  90. HYDROXYCHLOROQUINE [Concomitant]
     Active Substance: HYDROXYCHLOROQUINE
     Dosage: KGS LIQUID
  91. METOCLOPRAMIDE. [Concomitant]
     Active Substance: METOCLOPRAMIDE
  92. ZYRTEC?D [Concomitant]
     Active Substance: CETIRIZINE HYDROCHLORIDE\PSEUDOEPHEDRINE HYDROCHLORIDE
  93. CARISOPRODOL. [Concomitant]
     Active Substance: CARISOPRODOL
  94. METRONIDAZOLE. [Concomitant]
     Active Substance: METRONIDAZOLE
  95. LOVENOX [Concomitant]
     Active Substance: ENOXAPARIN SODIUM
     Dosage: ENOXAPARIN
     Route: 065
  96. SULFAMETHOXAZOLE/TRIMETHOPRIM [Concomitant]
     Active Substance: SULFAMETHOXAZOLE\TRIMETHOPRIM
  97. OXYCODONE/APAP [Concomitant]
     Active Substance: ACETAMINOPHEN\OXYCODONE HYDROCHLORIDE
     Dosage: OXYCODONE?ACETAMINOPHEN 1
     Route: 065
  98. TUMS [Concomitant]
     Active Substance: CALCIUM CARBONATE
     Route: 065
     Dates: start: 2000, end: 2005
  99. CARAFATE [Concomitant]
     Active Substance: SUCRALFATE
     Route: 065
     Dates: start: 20010320
  100. VALIUM [Concomitant]
     Active Substance: DIAZEPAM
     Route: 048
     Dates: start: 20010615
  101. DIOVAN HCT [Concomitant]
     Active Substance: HYDROCHLOROTHIAZIDE\VALSARTAN
     Dosage: 160/12.5 MG
     Route: 048
     Dates: start: 20020221
  102. CIPRO [Concomitant]
     Active Substance: CIPROFLOXACIN HYDROCHLORIDE
     Route: 048
     Dates: start: 20030226
  103. PREVACID [Concomitant]
     Active Substance: LANSOPRAZOLE
     Route: 048
     Dates: start: 20050811
  104. JANTOVEN [Concomitant]
     Active Substance: WARFARIN SODIUM
     Route: 048
     Dates: start: 20080613
  105. ZOLPIDEM TARTRATE. [Concomitant]
     Active Substance: ZOLPIDEM TARTRATE
     Route: 048
     Dates: start: 20071008
  106. PENNSAID [Concomitant]
     Active Substance: DICLOFENAC SODIUM
     Dosage: DICLOFENAC
     Route: 061
  107. TOPIRAMATE. [Concomitant]
     Active Substance: TOPIRAMATE
     Route: 061
  108. MAXIFED?G [Concomitant]
  109. TRIAMTERENE/ HCTZ [Concomitant]
  110. LISINOPRIL. [Concomitant]
     Active Substance: LISINOPRIL
  111. ANTARA [Concomitant]
     Active Substance: FENOFIBRATE
     Route: 065
  112. LOSARTAN POTASSIUM. [Concomitant]
     Active Substance: LOSARTAN POTASSIUM
  113. ZANTAC [Concomitant]
     Active Substance: RANITIDINE HYDROCHLORIDE
     Dosage: RANITIDINE
     Route: 048
     Dates: start: 20020523
  114. ZANAFLEX [Concomitant]
     Active Substance: TIZANIDINE HYDROCHLORIDE
     Route: 048
     Dates: start: 20010809
  115. ATROPINE. [Concomitant]
     Active Substance: ATROPINE
     Route: 048
     Dates: start: 20020426
  116. TRIAMTERENE. [Concomitant]
     Active Substance: TRIAMTERENE
     Route: 065
     Dates: start: 20020917
  117. LAMISIL [Concomitant]
     Active Substance: TERBINAFINE HYDROCHLORIDE
     Route: 048
     Dates: start: 20020917
  118. LIPITOR [Concomitant]
     Active Substance: ATORVASTATIN CALCIUM
     Route: 048
     Dates: start: 20040305
  119. SKELAXIN [Concomitant]
     Active Substance: METAXALONE
     Route: 048
     Dates: start: 20060628
  120. COREG [Concomitant]
     Active Substance: CARVEDILOL
     Route: 048
     Dates: start: 20060628
  121. ULTRAM [Concomitant]
     Active Substance: TRAMADOL HYDROCHLORIDE
     Dosage: TRAMADOL HYDROCHLORIDE
  122. CEPHALEXIN. [Concomitant]
     Active Substance: CEPHALEXIN
  123. LOTREL [Concomitant]
     Active Substance: AMLODIPINE BESYLATE\BENAZEPRIL HYDROCHLORIDE
  124. ELESTAT [Concomitant]
     Active Substance: EPINASTINE HYDROCHLORIDE
  125. AMOXICILLIN. [Concomitant]
     Active Substance: AMOXICILLIN
     Dosage: KGS LIQUID
  126. PHENAZOPYRIDINE. [Concomitant]
     Active Substance: PHENAZOPYRIDINE
     Dosage: KGS LIQUID
  127. OMNICEF [Concomitant]
     Active Substance: CEFDINIR
     Dosage: CEFDINIR
     Route: 065
  128. TOBRADEX [Concomitant]
     Active Substance: DEXAMETHASONE\TOBRAMYCIN
     Route: 047
  129. METHOCARBAMOL. [Concomitant]
     Active Substance: METHOCARBAMOL
  130. HYDRALAZINE [Concomitant]
     Active Substance: HYDRALAZINE HYDROCHLORIDE
  131. NISOLDIPINE. [Concomitant]
     Active Substance: NISOLDIPINE
  132. OXYCODONE/APAP [Concomitant]
     Active Substance: ACETAMINOPHEN\OXYCODONE HYDROCHLORIDE
     Route: 065
  133. HYOSCYAMINE SULFATE. [Concomitant]
     Active Substance: HYOSCYAMINE SULFATE
  134. NEXIUM [Suspect]
     Active Substance: ESOMEPRAZOLE MAGNESIUM
     Indication: GASTROINTESTINAL HAEMORRHAGE
     Route: 048
     Dates: start: 200007
  135. NEXIUM [Suspect]
     Active Substance: ESOMEPRAZOLE MAGNESIUM
     Indication: GASTROINTESTINAL HAEMORRHAGE
     Dosage: ESOMEPRAZOLE MAGNESIUM
  136. NEXIUM [Suspect]
     Active Substance: ESOMEPRAZOLE MAGNESIUM
     Indication: GASTRIC PH DECREASED
     Dosage: ESOMEPRAZOLE MAG DR
  137. GUAIFENEX [Concomitant]
     Active Substance: GUAIFENESIN\PHENYLEPHRINE\PHENYLPROPANOLAMINE
     Route: 048
     Dates: start: 20040126
  138. SUCRALFATE. [Concomitant]
     Active Substance: SUCRALFATE
     Route: 048
     Dates: start: 20060628
  139. ULTRAM [Concomitant]
     Active Substance: TRAMADOL HYDROCHLORIDE
     Route: 048
     Dates: start: 20080221
  140. PENNSAID [Concomitant]
     Active Substance: DICLOFENAC SODIUM
     Dosage: (APPLY 40 DROPS TO AFFECTE KNEE)
     Route: 061
  141. PENNSAID [Concomitant]
     Active Substance: DICLOFENAC SODIUM
     Dosage: PENNSAID 1.5% OLUTION
     Route: 065
  142. PENNSAID [Concomitant]
     Active Substance: DICLOFENAC SODIUM
     Dosage: DICLOFENAC SODIUM
     Route: 065
  143. SULAR [Concomitant]
     Active Substance: NISOLDIPINE
     Route: 048
  144. LEVAQUIN [Concomitant]
     Active Substance: LEVOFLOXACIN
     Route: 065
  145. LEVAQUIN [Concomitant]
     Active Substance: LEVOFLOXACIN
     Dosage: LEVOFLOXACIN
     Route: 065
  146. PROTUSS [Concomitant]
     Active Substance: DEXTROMETHORPHAN\GUAIFENESIN\PSEUDOEPHEDRINE HYDROCHLORIDE
  147. DIOVAN [Concomitant]
     Active Substance: VALSARTAN
     Route: 048
  148. ZELNORM [Concomitant]
     Active Substance: TEGASEROD MALEATE
  149. AMOX TR?K [Concomitant]
  150. LOVENOX [Concomitant]
     Active Substance: ENOXAPARIN SODIUM
     Route: 065
  151. PREDNISONE. [Concomitant]
     Active Substance: PREDNISONE
  152. CRESTOR [Concomitant]
     Active Substance: ROSUVASTATIN CALCIUM
     Dosage: ROSUVASTATIN CALCIUM
     Route: 065
  153. HYDROXYZINE HYDROCHLORIDE. [Concomitant]
     Active Substance: HYDROXYZINE HYDROCHLORIDE
  154. FLUOROURACIL. [Concomitant]
     Active Substance: FLUOROURACIL
     Route: 065
  155. GABAPENTIN. [Concomitant]
     Active Substance: GABAPENTIN

REACTIONS (5)
  - Chronic kidney disease [Unknown]
  - Acute kidney injury [Unknown]
  - Renal failure [Not Recovered/Not Resolved]
  - Tubulointerstitial nephritis [Unknown]
  - End stage renal disease [Unknown]

NARRATIVE: CASE EVENT DATE: 2013
